FAERS Safety Report 17165486 (Version 1)
Quarter: 2019Q4

REPORT INFORMATION
  Report Type: Spontaneous
  Country: JP (occurrence: JP)
  Receive Date: 20191217
  Receipt Date: 20191217
  Transmission Date: 20200122
  Serious: Yes (Other)
  Sender: FDA-Public Use
  Company Number: NVSC2019JP071192

PATIENT
  Age: 75 Year
  Sex: Male

DRUGS (1)
  1. PREDNISOLONE. [Suspect]
     Active Substance: PREDNISOLONE
     Indication: OCULAR SARCOIDOSIS
     Dosage: 0.5 MG/KG, QD
     Route: 062

REACTIONS (3)
  - Retinal detachment [Unknown]
  - Varicella zoster virus infection [Unknown]
  - Necrotising retinitis [Unknown]
